FAERS Safety Report 8265181-0 (Version None)
Quarter: 2012Q2

REPORT INFORMATION
  Report Type: 
  Country: None (occurrence: None)
  Receive Date: 20120406
  Receipt Date: 20120322
  Transmission Date: 20120825
  Serious: Yes (Hospitalization)
  Sender: FDA-Public Use
  Company Number: RO-ROCHE-1052930

PATIENT
  Age: 27 Year
  Sex: Male

DRUGS (3)
  1. PEGINTERFERON ALFA-2A [Suspect]
     Indication: HEPATITIS C
     Dosage: LAST DOSE PRIOR TO SAE:28/FEB/2012
     Dates: start: 20110530
  2. COPEGUS [Suspect]
     Indication: HEPATITIS C
     Dosage: LAST DOSE PRIOR TO SAE:04/MAR/2012
     Route: 065
     Dates: start: 20110530
  3. TG4040 (MVA-HCV) [Suspect]
     Indication: PRODUCT USED FOR UNKNOWN INDICATION
     Dosage: LAST DOSE PRIOR TO SAE:19/SEP/2011
     Dates: start: 20110228

REACTIONS (1)
  - CLINICALLY ISOLATED SYNDROME [None]
